FAERS Safety Report 13372313 (Version 4)
Quarter: 2017Q2

REPORT INFORMATION
  Report Type: Report from Study
  Country: CN (occurrence: CN)
  Receive Date: 20170327
  Receipt Date: 20170420
  Transmission Date: 20170830
  Serious: Yes (Hospitalization)
  Sender: FDA-Public Use
  Company Number: CN-ROCHE-1691594

PATIENT
  Sex: Female
  Weight: 45 kg

DRUGS (1)
  1. AVASTIN [Suspect]
     Active Substance: BEVACIZUMAB
     Indication: COLON CANCER
     Route: 041
     Dates: start: 20150709

REACTIONS (22)
  - Gingival ulceration [Unknown]
  - Abdominal pain upper [Unknown]
  - Diarrhoea [Recovering/Resolving]
  - Dermatitis [Unknown]
  - Gastrointestinal pain [Unknown]
  - Diarrhoea [Unknown]
  - Viral upper respiratory tract infection [Unknown]
  - Pyrexia [Unknown]
  - Weight decreased [Unknown]
  - Rash [Unknown]
  - Ascites [Unknown]
  - Asthenia [Unknown]
  - Pain [Unknown]
  - Skin mass [Unknown]
  - Pruritus [Unknown]
  - Mouth ulceration [Unknown]
  - Abdominal pain [Unknown]
  - Laryngeal discomfort [Unknown]
  - Pleural effusion [Recovering/Resolving]
  - Confusional state [Unknown]
  - Tracheitis [Unknown]
  - Bronchitis [Unknown]
